FAERS Safety Report 23896460 (Version 1)
Quarter: 2024Q2

REPORT INFORMATION
  Report Type: Spontaneous
  Country: JP (occurrence: JP)
  Receive Date: 20240524
  Receipt Date: 20240524
  Transmission Date: 20240716
  Serious: Yes (Death, Other)
  Sender: FDA-Public Use
  Company Number: JP-GENMAB-2024-01019AA

PATIENT
  Sex: Female
  Weight: 56.1 kg

DRUGS (13)
  1. EPKINLY [Suspect]
     Active Substance: EPCORITAMAB-BYSP
     Indication: Product used for unknown indication
     Dosage: 0.16 MILLIGRAM, SINGLE
     Route: 058
     Dates: start: 20240312, end: 20240312
  2. EPKINLY [Suspect]
     Active Substance: EPCORITAMAB-BYSP
     Dosage: 0.8 MILLIGRAM, SINGLE
     Route: 058
     Dates: start: 20240319, end: 20240319
  3. EPKINLY [Suspect]
     Active Substance: EPCORITAMAB-BYSP
     Dosage: 48 MILLIGRAM
     Route: 058
     Dates: start: 20240326, end: 20240401
  4. DEXAMETHASONE SODIUM PHOSPHATE [Concomitant]
     Active Substance: DEXAMETHASONE PHOSPHATE\DEXAMETHASONE SODIUM PHOSPHATE
     Indication: Prophylaxis
     Dosage: 13.2 MILLIGRAM, DAY 1, DAY 2, DAY 3 AND DAY 4 OF ADMINISTRATION OF EPKINLY SUBCUTANEOUS INJECTION (E
     Dates: start: 20240312
  5. POLARAMINE [Concomitant]
     Active Substance: DEXCHLORPHENIRAMINE MALEATE
     Indication: Prophylaxis
     Dosage: 5 MILLIGRAM, DAY 1 OF ADMINISTRATION OF EPKINLY SUBCUTANEOUS INJECTION (EPCORITAMAB) (GENETICAL RECO
     Dates: start: 20240312
  6. ACETAMINOPHEN [Concomitant]
     Active Substance: ACETAMINOPHEN
     Indication: Prophylaxis
     Dosage: 800 MILLIGRAM,  DAY 1 OF ADMINISTRATION OF EPKINLY SUBCUTANEOUS INJECTION (EPCORITAMAB) (GENETICAL R
     Dates: start: 20240312
  7. SODIUM CHLORIDE [Concomitant]
     Active Substance: SODIUM CHLORIDE
     Dosage: 500 MILLILITER, BEFORE STARTING OF EPKINLY SUBCUTANEOUS INJECTION (EPCORITAMAB) (GENETICAL RECOMBINA
     Dates: start: 20240312
  8. REPLAS 1 [Concomitant]
     Dosage: 500 MILLILITER, AFTER STARTING OF EPKINLY SUBCUTANEOUS INJECTION (EPCORITAMAB) (GENETICAL RECOMBINAT
     Route: 041
     Dates: start: 20240312
  9. ONEPAL NO.2 [Concomitant]
     Dosage: 1200 MILLILITER
     Dates: start: 20240312
  10. HUMULIN R [Concomitant]
     Active Substance: INSULIN HUMAN
     Dosage: 18 UNITS
     Dates: start: 20240312
  11. GASTER [Concomitant]
     Active Substance: FAMOTIDINE
     Dosage: 20 MILLIGRAM, 1A
     Dates: start: 20240312
  12. VENILON [Concomitant]
     Active Substance: HUMAN IMMUNOGLOBULIN G
     Dosage: 100 MILLILITER, 2 BOTTLES
     Dates: start: 20240312
  13. NEO MINOPHAGEN C [CYSTEINE HYDROCHLORIDE;GLYCINE;GLYCYRRHIZIC ACID, AM [Concomitant]
     Dosage: 20 MILLILITER
     Dates: start: 20230312

REACTIONS (2)
  - Cytokine release syndrome [Recovering/Resolving]
  - Malignant neoplasm progression [Fatal]

NARRATIVE: CASE EVENT DATE: 20240101
